FAERS Safety Report 8006769-1 (Version None)
Quarter: 2011Q4

REPORT INFORMATION
  Report Type: 
  Country: None (occurrence: None)
  Receive Date: 20111227
  Receipt Date: 20111216
  Transmission Date: 20120403
  Serious: Yes (Hospitalization)
  Sender: FDA-Public Use
  Company Number: US-BAYER-2011-046010

PATIENT
  Age: 35 Year
  Sex: Female
  Weight: 96.599 kg

DRUGS (4)
  1. PHENTERMINE HYDROCHLORIDE [Concomitant]
     Dosage: UNK
     Route: 048
     Dates: start: 20060101, end: 20080101
  2. NSAID'S [Concomitant]
     Dosage: UNK
     Route: 048
     Dates: start: 20010101, end: 20110101
  3. YAZ [Suspect]
     Indication: MENSTRUATION IRREGULAR
     Dosage: UNK
     Dates: start: 20061227, end: 20070604
  4. YASMIN [Suspect]
     Indication: MENSTRUATION IRREGULAR
     Dosage: UNK
     Dates: start: 20060628, end: 20061227

REACTIONS (9)
  - CHEST DISCOMFORT [None]
  - PAIN [None]
  - PULMONARY EMBOLISM [None]
  - DYSPNOEA [None]
  - INSOMNIA [None]
  - ANXIETY [None]
  - INJURY [None]
  - CHEST PAIN [None]
  - NAUSEA [None]
